FAERS Safety Report 6081771-8 (Version None)
Quarter: 2009Q1

REPORT INFORMATION
  Report Type: 
  Country: None (occurrence: None)
  Receive Date: 20090126
  Receipt Date: 20080625
  Transmission Date: 20090719
  Serious: Yes (Hospitalization)
  Sender: FDA-Public Use
  Company Number: WAES 0806USA08630

PATIENT
  Sex: Male

DRUGS (1)
  1. INVANZ [Suspect]
     Dosage: IV
     Route: 042

REACTIONS (2)
  - CONFUSIONAL STATE [None]
  - FATIGUE [None]
